FAERS Safety Report 9022255 (Version 1)
Quarter: 2013Q1

REPORT INFORMATION
  Report Type: Spontaneous
  Country: US (occurrence: US)
  Receive Date: 20130118
  Receipt Date: 20130118
  Transmission Date: 20140127
  Serious: Yes (Hospitalization, Other)
  Sender: FDA-Public Use
  Company Number: PHEH2013US001285

PATIENT
  Sex: Male

DRUGS (6)
  1. EXFORGE HCT [Suspect]
     Dosage: 1 DF (320 MG VALS/ 10 MG AMLO/ 25 MG HCTZ), UNK
  2. EXFORGE [Concomitant]
     Dosage: 1 DF(5MG AMLO/320 MG VALS), UNK
  3. SYNTHROID [Concomitant]
  4. ATORVASTATIN [Concomitant]
  5. HUMALOG [Concomitant]
  6. NEXIUM [Concomitant]

REACTIONS (2)
  - Hypotension [Unknown]
  - Fall [Unknown]
